FAERS Safety Report 18031968 (Version 1)
Quarter: 2020Q3

REPORT INFORMATION
  Report Type: Spontaneous
  Country: US (occurrence: US)
  Receive Date: 20200716
  Receipt Date: 20200716
  Transmission Date: 20201103
  Serious: Yes (Other)
  Sender: FDA-Public Use
  Company Number: None

PATIENT
  Age: 72 Year
  Sex: Male
  Weight: 80.8 kg

DRUGS (7)
  1. DEXAMETHASONE 6MG IV Q6H THEN DAILY [Concomitant]
     Dates: start: 20200710, end: 20200715
  2. VITAMIN C 1 GRAM PO DAILY [Concomitant]
     Dates: start: 20200711, end: 20200715
  3. REMDESIVIR. [Suspect]
     Active Substance: REMDESIVIR
     Indication: COVID-19 PNEUMONIA
     Dosage: ?          OTHER FREQUENCY:200MG, 100MG/DX4;?
     Route: 042
     Dates: start: 20200710, end: 20200715
  4. ENOXAPARIN 30MG SQ Q12H [Concomitant]
     Dates: start: 20200710, end: 20200715
  5. FAMOTIDINE 20MG PO Q12H [Concomitant]
     Dates: start: 20200712, end: 20200715
  6. CULTURELLE 1 CAP DAILY [Concomitant]
     Dates: start: 20200713, end: 20200715
  7. ZINC SULFATE 220MG PO DAILY [Concomitant]
     Dates: start: 20200711, end: 20200715

REACTIONS (2)
  - Alanine aminotransferase increased [None]
  - Aspartate aminotransferase increased [None]

NARRATIVE: CASE EVENT DATE: 20200713
